FAERS Safety Report 5092449-1 (Version None)
Quarter: 2006Q3

REPORT INFORMATION
  Report Type: 
  Country: None (occurrence: None)
  Receive Date: 20060825
  Receipt Date: 20060813
  Transmission Date: 20061208
  Serious: Yes (Hospitalization, Other)
  Sender: FDA-Public Use
  Company Number: 2006098573

PATIENT
  Sex: Male
  Weight: 74.8435 kg

DRUGS (5)
  1. VIAGRA [Suspect]
     Indication: ERECTILE DYSFUNCTION
     Dosage: 50 MG (50 MG,)
     Dates: start: 20040101
  2. TOPROL-XL [Concomitant]
  3. LIPITOR [Concomitant]
  4. PLAVIX [Concomitant]
  5. ASPIRIN [Concomitant]

REACTIONS (4)
  - ARTHROPOD BITE [None]
  - CORONARY ARTERY OCCLUSION [None]
  - DRUG INTERACTION [None]
  - FEELING ABNORMAL [None]
